FAERS Safety Report 9056756 (Version 2)
Quarter: 2013Q2

REPORT INFORMATION
  Report Type: Spontaneous
  Country: US (occurrence: US)
  Receive Date: 20130201
  Receipt Date: 20130628
  Transmission Date: 20140414
  Serious: Yes (Other)
  Sender: FDA-Public Use
  Company Number: US-ELI_LILLY_AND_COMPANY-US201301008390

PATIENT
  Sex: Male
  Weight: 99.32 kg

DRUGS (1)
  1. AXIRON [Suspect]
     Indication: HYPOGONADISM

REACTIONS (1)
  - Deep vein thrombosis [Recovered/Resolved]
